FAERS Safety Report 8260222-9 (Version None)
Quarter: 2012Q2

REPORT INFORMATION
  Report Type: 
  Country: None (occurrence: None)
  Receive Date: 20120404
  Receipt Date: 20120402
  Transmission Date: 20120825
  Serious: Yes (Death, Hospitalization)
  Sender: FDA-Public Use
  Company Number: US-ELI_LILLY_AND_COMPANY-US201008003029

PATIENT
  Sex: Female
  Weight: 146.94 kg

DRUGS (12)
  1. PHENERGAN HCL [Concomitant]
     Dosage: 25 MG, PRN
  2. TENORETIC 100 [Concomitant]
     Dosage: UNK, QD
  3. FLUCONAZOLE [Concomitant]
     Indication: FUNGAL INFECTION
     Dosage: 150 MG, UNK
     Dates: start: 20090604
  4. GLUCOPHAGE [Concomitant]
     Dosage: 1000 MG, EACH EVENING
  5. DARVON (HCL) [Concomitant]
     Dosage: 65 MG, PRN
  6. NAPROXEN (ALEVE) [Concomitant]
     Dosage: UNK, PRN
  7. NEXIUM [Concomitant]
     Dosage: 40 MG, BID
  8. SUCRALFATE [Concomitant]
     Indication: ULCER
     Dosage: 1 MG, UNK
     Dates: start: 20090610
  9. BYETTA [Suspect]
     Indication: TYPE 2 DIABETES MELLITUS
     Dosage: 10 MG, BID
     Dates: start: 20060515, end: 20090623
  10. FAMOTIDINE [Concomitant]
     Indication: ULCER
     Dosage: 20 MG, UNK
     Dates: start: 20090610
  11. MULTIVITAMIN [Concomitant]
     Dosage: UNK, BID
  12. LISINOPRIL [Concomitant]
     Indication: HYPERTENSION
     Dosage: 40 MG, QD
     Dates: start: 20090606

REACTIONS (8)
  - PANCREATITIS ACUTE [None]
  - CARDIAC ARREST [None]
  - METABOLIC ACIDOSIS [None]
  - MULTI-ORGAN FAILURE [None]
  - RENAL FAILURE ACUTE [None]
  - HYPOKALAEMIA [None]
  - SEPTIC SHOCK [None]
  - ARRHYTHMIA [None]
